FAERS Safety Report 11101954 (Version 2)
Quarter: 2016Q1

REPORT INFORMATION
  Report Type: Spontaneous
  Country: US (occurrence: US)
  Receive Date: 20150510
  Receipt Date: 20160217
  Transmission Date: 20160525
  Serious: Yes (Other)
  Sender: FDA-Public Use
  Company Number: US-TEVA-560280USA

PATIENT
  Age: 58 Year
  Sex: Female

DRUGS (1)
  1. COPAXONE [Suspect]
     Active Substance: GLATIRAMER ACETATE
     Indication: MULTIPLE SCLEROSIS
     Route: 065
     Dates: start: 20150304, end: 20150429

REACTIONS (6)
  - Anal incontinence [Unknown]
  - Erythema [Unknown]
  - Loss of consciousness [Unknown]
  - Feeling hot [Unknown]
  - Urinary incontinence [Unknown]
  - Pruritus [Unknown]

NARRATIVE: CASE EVENT DATE: 20150429
